FAERS Safety Report 13871486 (Version 2)
Quarter: 2017Q4

REPORT INFORMATION
  Report Type: Spontaneous
  Country: US (occurrence: US)
  Receive Date: 20170816
  Receipt Date: 20171117
  Transmission Date: 20180320
  Serious: No
  Sender: FDA-Public Use
  Company Number: US-BAYER-2017-155696

PATIENT
  Age: 40 Year
  Sex: Female
  Weight: 80.73 kg

DRUGS (14)
  1. MIRENA [Suspect]
     Active Substance: LEVONORGESTREL
     Indication: HAEMORRHOIDS
     Dosage: 20 MCG/24HR, CONT
     Route: 015
     Dates: start: 20171114
  2. PROAIR HFA [Concomitant]
     Active Substance: ALBUTEROL SULFATE
  3. SINGULAIR [Concomitant]
     Active Substance: MONTELUKAST SODIUM
     Dosage: 10 MG, UNK
     Route: 048
  4. OMNIPAQUE [Concomitant]
     Active Substance: IOHEXOL
  5. PROCTOCORT [HYDROCORTISONE] [Concomitant]
  6. PROCTOSOL HC [Concomitant]
  7. FLUOXETINE [Concomitant]
     Active Substance: FLUOXETINE HYDROCHLORIDE
     Dosage: 10 MG, QD
     Route: 048
  8. CETIRIZINE [Concomitant]
     Active Substance: CETIRIZINE HYDROCHLORIDE
     Dosage: 10 MG, QD
  9. ZANTAC [Concomitant]
     Active Substance: RANITIDINE HYDROCHLORIDE
     Dosage: 150 MG, BID
  10. FLUTICASONE. [Concomitant]
     Active Substance: FLUTICASONE
     Dosage: UNK UNK, QD
     Route: 045
  11. LORATADINE. [Concomitant]
     Active Substance: LORATADINE
     Dosage: 10 MG, QD
     Route: 048
  12. PRENATAL [Concomitant]
     Active Substance: VITAMINS
     Dosage: 1 MG, QD
  13. MIRENA [Suspect]
     Active Substance: LEVONORGESTREL
     Indication: CONTRACEPTION
     Dosage: 20 MCG/24HR, CONT
     Route: 015
     Dates: start: 20170703, end: 20170731
  14. LABETALOL [Concomitant]
     Active Substance: LABETALOL\LABETALOL HYDROCHLORIDE
     Dosage: 200 MG, BID
     Route: 048

REACTIONS (2)
  - Device expulsion [None]
  - Abdominal pain lower [None]

NARRATIVE: CASE EVENT DATE: 20170731
